FAERS Safety Report 6891357-0 (Version None)
Quarter: 2010Q3

REPORT INFORMATION
  Report Type: 
  Country: None (occurrence: None)
  Receive Date: 20100731
  Receipt Date: 20060831
  Transmission Date: 20110219
  Serious: No
  Sender: FDA-Public Use
  Company Number: US-PFIZER INC-2006106906

PATIENT
  Age: 23 Year
  Sex: Male

DRUGS (3)
  1. DEPO-MEDROL [Suspect]
     Indication: PHARYNGEAL OEDEMA
     Route: 065
     Dates: start: 20060830
  2. AUGMENTIN '125' [Concomitant]
     Route: 065
  3. ROCEPHIN [Concomitant]
     Route: 065

REACTIONS (1)
  - FLUSHING [None]
